FAERS Safety Report 22400263 (Version 1)
Quarter: 2023Q2

REPORT INFORMATION
  Report Type: Spontaneous
  Country: US (occurrence: None)
  Receive Date: 20230601
  Receipt Date: 20230601
  Transmission Date: 20230722
  Serious: Yes (Hospitalization)
  Sender: FDA-Public Use
  Company Number: None

PATIENT
  Sex: Female

DRUGS (11)
  1. CAPECITABINE [Suspect]
     Active Substance: CAPECITABINE
     Indication: Breast cancer female
     Dosage: OTHER FREQUENCY : BID 14D/21D CYCLE;?
     Route: 048
  2. DILTIAZEM [Concomitant]
     Active Substance: DILTIAZEM
  3. GABAPENTIN [Concomitant]
     Active Substance: GABAPENTIN
  4. LOSARTAN [Concomitant]
     Active Substance: LOSARTAN
  5. PROCHLORPERAZINE [Concomitant]
     Active Substance: PROCHLORPERAZINE
  6. PAROXETINE [Concomitant]
     Active Substance: PAROXETINE
  7. POTASSIUM CHLORIDE [Concomitant]
     Active Substance: POTASSIUM CHLORIDE
  8. FUROSEMIDE [Concomitant]
     Active Substance: FUROSEMIDE
  9. CARVEDILOL [Concomitant]
     Active Substance: CARVEDILOL
  10. METFORMIN [Concomitant]
     Active Substance: METFORMIN HYDROCHLORIDE
  11. ELIQUIS [Concomitant]
     Active Substance: APIXABAN

REACTIONS (4)
  - Dehydration [None]
  - Asthenia [None]
  - Gait inability [None]
  - Therapy interrupted [None]
